FAERS Safety Report 15405012 (Version 1)
Quarter: 2018Q3

REPORT INFORMATION
  Report Type: Spontaneous
  Country: FR (occurrence: FR)
  Receive Date: 20180920
  Receipt Date: 20180920
  Transmission Date: 20181010
  Serious: Yes (Hospitalization)
  Sender: FDA-Public Use
  Company Number: FR-SUN PHARMACEUTICAL INDUSTRIES LTD-2018RR-184906

PATIENT
  Age: 35 Year
  Sex: Female
  Weight: 66.9 kg

DRUGS (4)
  1. AMOXICILLIN. [Suspect]
     Active Substance: AMOXICILLIN
     Indication: BRONCHITIS
     Dosage: 3 G, DAILY
     Route: 048
     Dates: start: 20180722, end: 20180727
  2. TRIFLUCAN [Suspect]
     Active Substance: FLUCONAZOLE
     Indication: PRODUCT USED FOR UNKNOWN INDICATION
     Dosage: NON PRECISEE ()
     Route: 048
     Dates: start: 20180722, end: 20180727
  3. ACICLOVIR [Suspect]
     Active Substance: ACYCLOVIR
     Indication: PRODUCT USED FOR UNKNOWN INDICATION
     Dosage: NON PRECISEE ()
     Route: 048
     Dates: start: 20180722, end: 20180727
  4. PARACETAMOL [Suspect]
     Active Substance: ACETAMINOPHEN
     Indication: PAIN
     Dosage: 3 G, DAILY
     Route: 048
     Dates: start: 20180722, end: 20180727

REACTIONS (1)
  - Hepatitis acute [Recovered/Resolved with Sequelae]

NARRATIVE: CASE EVENT DATE: 20180728
